FAERS Safety Report 6694551-7 (Version None)
Quarter: 2010Q2

REPORT INFORMATION
  Report Type: 
  Country: None (occurrence: None)
  Receive Date: 20100423
  Receipt Date: 20100420
  Transmission Date: 20101027
  Serious: Yes (Death, Hospitalization)
  Sender: FDA-Public Use
  Company Number: US-BRISTOL-MYERS SQUIBB COMPANY-15070147

PATIENT
  Age: 49 Year
  Sex: Female

DRUGS (5)
  1. METFORMIN HCL [Suspect]
     Dosage: FORMULATION:TABLET 500MG NO OF DOSES=60TABLETS
  2. PRINZIDE [Suspect]
     Dosage: FORMULATION=TABLET NO OF DOSES=20-25 TABLETS DOSAGE=12.5MG/20MG COMBINATION
  3. NORMAL SALINE [Concomitant]
     Route: 042
  4. SODIUM BICARBONATE [Concomitant]
     Dosage: DOSE=150MEQ IN 1L D5W CONTINUOUS INFUSION
     Route: 042
  5. INSULIN [Concomitant]
     Dosage: 1DF=10 UNITS PER HOUR ROUTE=INFUSION
     Route: 042

REACTIONS (5)
  - HYPERGLYCAEMIA [None]
  - HYPOTENSION [None]
  - INTENTIONAL OVERDOSE [None]
  - LACTIC ACIDOSIS [None]
  - RENAL FAILURE ACUTE [None]
